FAERS Safety Report 5044621-4 (Version None)
Quarter: 2006Q3

REPORT INFORMATION
  Report Type: 
  Country: None (occurrence: None)
  Receive Date: 20060706
  Receipt Date: 20060619
  Transmission Date: 20061208
  Serious: Yes (Hospitalization)
  Sender: FDA-Public Use
  Company Number: DE-BRISTOL-MYERS SQUIBB COMPANY-13433701

PATIENT
  Age: 59 Year
  Sex: Female

DRUGS (3)
  1. ENDOXAN [Suspect]
     Indication: DRUG USE FOR UNKNOWN INDICATION
     Route: 042
     Dates: start: 20060511, end: 20060511
  2. DOXORUBICIN HCL [Suspect]
     Indication: DRUG USE FOR UNKNOWN INDICATION
     Route: 042
     Dates: start: 20060511, end: 20060511
  3. TAXOTERE [Suspect]
     Indication: DRUG USE FOR UNKNOWN INDICATION
     Route: 042
     Dates: start: 20060511, end: 20060511

REACTIONS (4)
  - DEHYDRATION [None]
  - DIARRHOEA [None]
  - ENURESIS [None]
  - LEUKOPENIA [None]
